FAERS Safety Report 10647382 (Version 1)
Quarter: 2014Q4

REPORT INFORMATION
  Report Type: Report from Study
  Country: BR (occurrence: BR)
  Receive Date: 20141211
  Receipt Date: 20141211
  Transmission Date: 20150529
  Serious: Yes (Other)
  Sender: FDA-Public Use
  Company Number: BR-B.I. PHARMACEUTICALS,INC./RIDGEFIELD-2014-BI-58743BI

PATIENT
  Age: 62 Year
  Sex: Male
  Weight: 95 kg

DRUGS (15)
  1. METFORMIN [Concomitant]
     Active Substance: METFORMIN HYDROCHLORIDE
     Indication: TYPE 2 DIABETES MELLITUS
     Dosage: DOSE PER APP: 500 AND DAILY DOSE 1500
     Route: 048
     Dates: start: 20121108
  2. BI 10773 [Suspect]
     Active Substance: EMPAGLIFLOZIN
     Indication: TYPE 2 DIABETES MELLITUS
     Dosage: 10 MG
     Route: 048
     Dates: start: 20121018
  3. INSULIN HUMAN [Concomitant]
     Active Substance: INSULIN HUMAN
     Indication: TYPE 2 DIABETES MELLITUS
     Dosage: 80 U
     Route: 058
     Dates: start: 201302
  4. HYDROCHLOROTHIAZIDE. [Concomitant]
     Active Substance: HYDROCHLOROTHIAZIDE
     Indication: HYPERTENSION
     Dosage: DOSE PER APP: 25 AND DAILY DOSE 25
     Route: 048
     Dates: start: 2004
  5. ENALOPRIL [Concomitant]
     Indication: HYPERTENSION
     Dosage: DOSE PER APP: 10 AND DAILY DOSE 20
     Route: 048
     Dates: start: 2004
  6. FLUOXETINE [Concomitant]
     Active Substance: FLUOXETINE\FLUOXETINE HYDROCHLORIDE
     Indication: DEPRESSION
     Dosage: DOSE PER APP: 20 AND DAILY DOSE 20
     Route: 048
     Dates: start: 20141027
  7. METOPROLOL TARTRATE. [Concomitant]
     Active Substance: METOPROLOL TARTRATE
     Indication: MYOCARDIAL ISCHAEMIA
     Dosage: DOSE PER APP: 100 AND DAILY DOSE 200
     Route: 048
     Dates: start: 20121027
  8. PROPACTINITRATE [Concomitant]
     Indication: MYOCARDIAL ISCHAEMIA
     Dosage: DOSE PER APP: 30 AND DAILY DOSE 90
     Route: 048
     Dates: start: 20140627
  9. INSULIN REGULAR [Concomitant]
     Active Substance: INSULIN NOS
     Indication: TYPE 2 DIABETES MELLITUS
     Dosage: FORMULATION-INJECTABLE, DOSE PER APP 18+18, DAILY DOSE 36
     Route: 058
     Dates: start: 20140627
  10. ASPIRIN. [Concomitant]
     Active Substance: ASPIRIN
     Indication: ISCHAEMIC HEART DISEASE PROPHYLAXIS
     Dosage: DOSE PER APP: 100 AND DAILY DOSE 100
     Route: 048
     Dates: start: 2004
  11. CLOPIDOGREL [Concomitant]
     Active Substance: CLOPIDOGREL BISULFATE
     Indication: MYOCARDIAL ISCHAEMIA
     Dosage: DOSE PER APP: 75 AND DAILY DOSE 75
     Route: 048
     Dates: start: 20121027
  12. CIPROFIBRATE [Concomitant]
     Active Substance: CIPROFIBRATE
     Indication: DYSLIPIDAEMIA
     Dosage: DOSE PER APP: 100 AND DAILY DOSE 100
     Route: 048
     Dates: start: 20140315
  13. ROSUVASTATINE [Concomitant]
     Active Substance: ROSUVASTATIN
     Indication: DYSLIPIDAEMIA
     Dosage: DOSE PER APP: 20 AND DAILY DOSE 20
     Route: 048
     Dates: start: 20140627
  14. ISOSORBIDE [Concomitant]
     Active Substance: ISOSORBIDE
     Indication: MYOCARDIAL ISCHAEMIA
     Dosage: DOSE PER APP: 5 AND DAILY DOSE 5
     Route: 060
     Dates: start: 20121026
  15. OMEPRAZOL [Concomitant]
     Active Substance: OMEPRAZOLE
     Indication: ABDOMINAL PAIN UPPER
     Dosage: DOSE PER APP: 40 AND DAILY DOSE 40
     Route: 048
     Dates: start: 20120815

REACTIONS (1)
  - Cardiac failure congestive [Not Recovered/Not Resolved]

NARRATIVE: CASE EVENT DATE: 20141115
